FAERS Safety Report 6807113-5 (Version None)
Quarter: 2010Q2

REPORT INFORMATION
  Report Type: 
  Country: None (occurrence: None)
  Receive Date: 20100628
  Receipt Date: 20100628
  Transmission Date: 20101027
  Serious: No
  Sender: FDA-Public Use
  Company Number: None

PATIENT
  Age: 63 Year
  Sex: Female
  Weight: 63.5036 kg

DRUGS (1)
  1. TACROLIMUS [Suspect]
     Indication: RENAL TRANSPLANT
     Dosage: 2 CAPSULES TWO TIMES PER DAY PO
     Route: 048
     Dates: start: 20090909, end: 20100616

REACTIONS (3)
  - ARTHRALGIA [None]
  - ASTHENIA [None]
  - PRODUCT SUBSTITUTION ISSUE [None]
